FAERS Safety Report 15110109 (Version 1)
Quarter: 2018Q3

REPORT INFORMATION
  Report Type: Spontaneous
  Country: US (occurrence: US)
  Receive Date: 20180705
  Receipt Date: 20180705
  Transmission Date: 20181010
  Serious: Yes (Other)
  Sender: FDA-Public Use
  Company Number: US-MYLANLABS-2018M1046272

PATIENT
  Age: 26 Year
  Sex: Male

DRUGS (13)
  1. DEXAMETHASONE. [Suspect]
     Active Substance: DEXAMETHASONE
     Indication: ACUTE LYMPHOCYTIC LEUKAEMIA
     Dosage: 8 CYCLES OF HYPER CVAD REGIMEN
     Route: 065
  2. MITOXANTRONE [Suspect]
     Active Substance: MITOXANTRONE HYDROCHLORIDE
     Indication: ACUTE LYMPHOCYTIC LEUKAEMIA
     Dosage: 2 CYCLES
     Route: 065
     Dates: start: 201604
  3. DOXORUBICIN [Suspect]
     Active Substance: DOXORUBICIN
     Indication: ACUTE LYMPHOCYTIC LEUKAEMIA
     Dosage: 8 CYCLES OF HYPER CVAD REGIMEN
     Route: 065
  4. VORICONAZOLE. [Suspect]
     Active Substance: VORICONAZOLE
     Indication: ACUTE LYMPHOCYTIC LEUKAEMIA
     Route: 048
  5. BLINATUMOMAB [Suspect]
     Active Substance: BLINATUMOMAB
     Indication: ACUTE LYMPHOCYTIC LEUKAEMIA
     Dosage: LESS THAN TWO WEEKS OF THERAPY
     Route: 065
  6. IMATINIB [Suspect]
     Active Substance: IMATINIB
     Indication: ACUTE LYMPHOCYTIC LEUKAEMIA
     Dosage: 2 CYCLES
     Route: 065
     Dates: start: 201604
  7. NILOTINIB [Suspect]
     Active Substance: NILOTINIB
     Indication: ACUTE LYMPHOCYTIC LEUKAEMIA
     Dosage: FOLLOWED BY MAINTENANCE
     Route: 065
  8. VINCRISTINE [Suspect]
     Active Substance: VINCRISTINE
     Indication: ACUTE LYMPHOCYTIC LEUKAEMIA
     Dosage: 8 CYCLES OF HYPER CVAD REGIMEN
     Route: 065
  9. CLOFARABINE. [Suspect]
     Active Substance: CLOFARABINE
     Indication: ACUTE LYMPHOCYTIC LEUKAEMIA
     Dosage: A PART OF CCE REGIMEN
     Route: 065
  10. CYCLOPHOSPHAMIDE. [Suspect]
     Active Substance: CYCLOPHOSPHAMIDE
     Indication: ACUTE LYMPHOCYTIC LEUKAEMIA
     Dosage: 8 CYCLES OF HYPER CVAD REGIMEN AND ALSO A PART OF CCE REGIMEN
     Route: 065
  11. DASATINIB. [Interacting]
     Active Substance: DASATINIB
     Indication: ACUTE LYMPHOCYTIC LEUKAEMIA
     Route: 065
  12. CYTARABINE. [Suspect]
     Active Substance: CYTARABINE
     Indication: ACUTE LYMPHOCYTIC LEUKAEMIA
     Dosage: 2 CYCLES; HIGH DOSE
     Route: 065
     Dates: start: 201604
  13. ETOPOSIDE. [Suspect]
     Active Substance: ETOPOSIDE
     Indication: ACUTE LYMPHOCYTIC LEUKAEMIA
     Dosage: A PART OF CCE REGIMEN
     Route: 065

REACTIONS (4)
  - Neutropenia [Recovered/Resolved]
  - Drug interaction [Recovered/Resolved]
  - Haematuria [Recovered/Resolved]
  - Adenoviral haemorrhagic cystitis [Recovered/Resolved]
